FAERS Safety Report 15264359 (Version 1)
Quarter: 2018Q3

REPORT INFORMATION
  Report Type: Spontaneous
  Country: US (occurrence: US)
  Receive Date: 20180722
  Receipt Date: 20180722
  Transmission Date: 20181010
  Serious: Yes (Hospitalization, Disabling, Other)
  Sender: FDA-Public Use
  Company Number: None

PATIENT
  Age: 3 Year
  Sex: Female
  Weight: 14.85 kg

DRUGS (1)
  1. POLYETHYLENE GLYCOL 3350 NF [Suspect]
     Active Substance: POLYETHYLENE GLYCOL 3350
     Indication: CONSTIPATION
     Dates: start: 20180509, end: 20180628

REACTIONS (5)
  - Hallucination [None]
  - Anxiety [None]
  - Personality change [None]
  - Lethargy [None]
  - Hypophagia [None]

NARRATIVE: CASE EVENT DATE: 20180509
